FAERS Safety Report 15644014 (Version 1)
Quarter: 2018Q4

REPORT INFORMATION
  Report Type: Spontaneous
  Country: US (occurrence: US)
  Receive Date: 20181121
  Receipt Date: 20181121
  Transmission Date: 20190205
  Serious: No
  Sender: FDA-Public Use
  Company Number: US-GILEAD-2018-0375049

PATIENT
  Age: 29 Year
  Sex: Male

DRUGS (3)
  1. VEMLIDY [Suspect]
     Active Substance: TENOFOVIR ALAFENAMIDE FUMARATE
     Indication: HEPATITIS B
     Dosage: 25 MG
     Route: 048
     Dates: start: 201705
  2. CHOLECALCIFEROL [Concomitant]
     Active Substance: CHOLECALCIFEROL
  3. OMEGA 3 [FISH OIL] [Concomitant]

REACTIONS (1)
  - Product dose omission [Unknown]
